FAERS Safety Report 7933286-7 (Version None)
Quarter: 2011Q4

REPORT INFORMATION
  Report Type: 
  Country: None (occurrence: None)
  Receive Date: 20111122
  Receipt Date: 20111114
  Transmission Date: 20120403
  Serious: Yes (Other)
  Sender: FDA-Public Use
  Company Number: MX-UCBSA-045761

PATIENT
  Age: 71 Year
  Sex: Female
  Weight: 60 kg

DRUGS (3)
  1. NUBRENZA [Suspect]
     Indication: PARKINSON'S DISEASE
     Route: 062
     Dates: start: 20111012, end: 20111012
  2. AZILECT [Concomitant]
     Indication: PARKINSON'S DISEASE
     Route: 048
     Dates: start: 20080101
  3. AVAPRO [Concomitant]
     Indication: HYPERTENSION
     Route: 048
     Dates: start: 20060101

REACTIONS (3)
  - ANXIETY [None]
  - HYPERTENSIVE CRISIS [None]
  - TACHYCARDIA [None]
